FAERS Safety Report 11429793 (Version 1)
Quarter: 2015Q3

REPORT INFORMATION
  Report Type: Spontaneous
  Country: US (occurrence: US)
  Receive Date: 20150828
  Receipt Date: 20150828
  Transmission Date: 20151125
  Serious: No
  Sender: FDA-Public Use
  Company Number: US-ROCHE-1264113

PATIENT
  Age: 45 Year
  Sex: Male

DRUGS (4)
  1. COPEGUS [Suspect]
     Active Substance: RIBAVIRIN
     Indication: CHRONIC HEPATITIS C
     Dosage: IN DIVIDED DOSES, 400/400
     Route: 065
     Dates: start: 20130816
  2. TELAPREVIR [Suspect]
     Active Substance: TELAPREVIR
     Indication: CHRONIC HEPATITIS C
     Route: 058
     Dates: start: 20130816
  3. PEGASYS [Suspect]
     Active Substance: PEGINTERFERON ALFA-2A
     Indication: CHRONIC HEPATITIS C
     Route: 058
     Dates: start: 20130816
  4. ZOLOFT [Concomitant]
     Active Substance: SERTRALINE HYDROCHLORIDE
     Route: 065
     Dates: end: 2004

REACTIONS (7)
  - Haemorrhage [Unknown]
  - Injection site erythema [Unknown]
  - Crying [Unknown]
  - Fatigue [Unknown]
  - Dyspnoea [Unknown]
  - Procedural complication [Unknown]
  - Viral infection [Unknown]

NARRATIVE: CASE EVENT DATE: 20130816
